FAERS Safety Report 15467270 (Version 1)
Quarter: 2018Q4

REPORT INFORMATION
  Report Type: Spontaneous
  Country: IT (occurrence: IT)
  Receive Date: 20181005
  Receipt Date: 20181005
  Transmission Date: 20190204
  Serious: Yes (Hospitalization)
  Sender: FDA-Public Use
  Company Number: IT-TEVA-2018-IT-960992

PATIENT
  Age: 87 Year
  Sex: Male

DRUGS (8)
  1. TAREG [Concomitant]
     Active Substance: VALSARTAN
     Route: 048
  2. MINITRAN [Concomitant]
     Active Substance: NITROGLYCERIN
     Route: 065
  3. PRAVASELECT [Concomitant]
     Active Substance: PRAVASTATIN SODIUM
     Route: 048
  4. FUROSEMIDE. [Suspect]
     Active Substance: FUROSEMIDE
     Dosage: 250 MILLIGRAM DAILY;
     Route: 048
     Dates: start: 20080430, end: 20080504
  5. TAVOR (LORAZEPAM) [Concomitant]
     Active Substance: LORAZEPAM
     Route: 065
  6. PANTORC [Concomitant]
     Active Substance: PANTOPRAZOLE SODIUM
     Route: 065
  7. AVODART [Concomitant]
     Active Substance: DUTASTERIDE
     Route: 065
  8. TICLOPIDINA [Concomitant]
     Active Substance: TICLOPIDINE
     Route: 048

REACTIONS (3)
  - Orthostatic hypotension [Recovered/Resolved]
  - Hypovolaemia [Recovered/Resolved]
  - Renal failure [Recovered/Resolved]

NARRATIVE: CASE EVENT DATE: 20080501
